FAERS Safety Report 6200904-3 (Version None)
Quarter: 2009Q2

REPORT INFORMATION
  Report Type: 
  Country: None (occurrence: None)
  Receive Date: 20090523
  Receipt Date: 20081103
  Transmission Date: 20091009
  Serious: No
  Sender: FDA-Public Use
  Company Number: US-ALEXION-A200800328

PATIENT
  Sex: Male

DRUGS (4)
  1. SOLIRIS [Suspect]
     Indication: PAROXYSMAL NOCTURNAL HAEMOGLOBINURIA
     Dosage: 600 MG, QWK
     Route: 042
     Dates: start: 20081007, end: 20081028
  2. SOLIRIS [Suspect]
     Dosage: 900 MG, UNK
     Route: 042
     Dates: start: 20081104
  3. LAPATINIB [Suspect]
     Indication: CHEMOTHERAPY
  4. DASATINIB [Suspect]
     Indication: CHEMOTHERAPY

REACTIONS (5)
  - ABDOMINAL DISCOMFORT [None]
  - BACK PAIN [None]
  - DIARRHOEA [None]
  - DRY SKIN [None]
  - PRURITUS [None]
